FAERS Safety Report 17082648 (Version 4)
Quarter: 2020Q1

REPORT INFORMATION
  Report Type: Spontaneous
  Country: ES (occurrence: ES)
  Receive Date: 20191127
  Receipt Date: 20200123
  Transmission Date: 20200409
  Serious: Yes (Death)
  Sender: FDA-Public Use
  Company Number: ES-ASTRAZENECA-2019SF69118

PATIENT
  Age: 1 Year
  Sex: Female
  Weight: 8.8 kg

DRUGS (3)
  1. LEVETIRACETAM. [Concomitant]
     Active Substance: LEVETIRACETAM
     Indication: NEONATAL SEIZURE
     Dosage: SMALL FOR GESTATIONAL AGE120.0MG UNKNOWN
     Dates: start: 201811, end: 20191119
  2. DHA [Concomitant]
     Active Substance: DIETARY SUPPLEMENT
     Dates: start: 201906, end: 20191119
  3. SYNAGIS [Suspect]
     Active Substance: PALIVIZUMAB
     Indication: PRODUCT USED FOR UNKNOWN INDICATION
     Dosage: 130.0MG UNKNOWN
     Route: 030
     Dates: start: 20191111

REACTIONS (1)
  - Death [Fatal]

NARRATIVE: CASE EVENT DATE: 20191119
